FAERS Safety Report 16995145 (Version 2)
Quarter: 2019Q4

REPORT INFORMATION
  Report Type: Spontaneous
  Country: AU (occurrence: AU)
  Receive Date: 20191105
  Receipt Date: 20191111
  Transmission Date: 20200122
  Serious: No
  Sender: FDA-Public Use
  Company Number: NVSC2019AU017006

PATIENT
  Sex: Female

DRUGS (1)
  1. FAMVIR [Suspect]
     Active Substance: FAMCICLOVIR
     Indication: GENITAL HERPES
     Route: 065

REACTIONS (5)
  - Polymenorrhoea [Unknown]
  - Visual impairment [Unknown]
  - Product outer packaging issue [Unknown]
  - Product packaging quantity issue [Unknown]
  - Feeling abnormal [Unknown]
